FAERS Safety Report 16137679 (Version 7)
Quarter: 2025Q3

REPORT INFORMATION
  Report Type: Spontaneous
  Country: EU (occurrence: EU)
  Receive Date: 20190330
  Receipt Date: 20250911
  Transmission Date: 20251020
  Serious: Yes (Life-Threatening, Hospitalization, Other)
  Sender: AUROBINDO
  Company Number: None

PATIENT
  Age: 77 Year
  Sex: Female
  Weight: 63 kg

DRUGS (24)
  1. LETROZOLE [Suspect]
     Active Substance: LETROZOLE
     Indication: Invasive ductal breast carcinoma
     Route: 065
     Dates: start: 201811, end: 20190306
  2. LETROZOLE [Suspect]
     Active Substance: LETROZOLE
     Indication: Breast cancer
     Route: 065
     Dates: start: 201811, end: 20190307
  3. LETROZOLE [Suspect]
     Active Substance: LETROZOLE
     Route: 065
     Dates: start: 20190329
  4. LETROZOLE [Suspect]
     Active Substance: LETROZOLE
     Dosage: 1 DOSAGE FORM, ONCE A DAY
     Route: 048
     Dates: start: 20190501
  5. CYCLOSPORINE [Suspect]
     Active Substance: CYCLOSPORINE
     Indication: Stevens-Johnson syndrome
     Route: 065
  6. CYCLOSPORINE [Suspect]
     Active Substance: CYCLOSPORINE
     Dosage: 30 MICROGRAM/KILOGRAM, ONCE A DAY
     Route: 065
  7. CYCLOSPORINE [Suspect]
     Active Substance: CYCLOSPORINE
     Route: 065
     Dates: start: 20190308
  8. CYCLOSPORINE [Suspect]
     Active Substance: CYCLOSPORINE
     Route: 065
     Dates: start: 20190311
  9. ETANERCEPT [Suspect]
     Active Substance: ETANERCEPT
     Indication: Stevens-Johnson syndrome
     Route: 058
  10. ETANERCEPT [Suspect]
     Active Substance: ETANERCEPT
     Route: 058
  11. KISQALI [Suspect]
     Active Substance: RIBOCICLIB SUCCINATE
     Indication: Breast cancer
     Route: 065
     Dates: start: 201811
  12. KISQALI [Suspect]
     Active Substance: RIBOCICLIB SUCCINATE
     Indication: Invasive lobular breast carcinoma
     Dosage: 600 MILLIGRAM, ONCE A DAY
     Route: 065
     Dates: start: 20181120, end: 20190306
  13. SINTROM [Suspect]
     Active Substance: ACENOCOUMAROL
     Indication: Anticoagulant therapy
     Dosage: 4 MILLIGRAM, ONCE A DAY
     Route: 048
  14. PALBOCICLIB [Suspect]
     Active Substance: PALBOCICLIB
     Indication: Invasive ductal breast carcinoma
     Route: 048
     Dates: start: 20190501
  15. AMLODIPINE [Concomitant]
     Active Substance: AMLODIPINE BESYLATE
     Indication: Product used for unknown indication
     Route: 065
  16. ATORVASTATIN [Concomitant]
     Active Substance: ATORVASTATIN
     Indication: Product used for unknown indication
     Dosage: 10 MILLIGRAM, ONCE A DAY
     Route: 065
  17. CARVEDILOL [Concomitant]
     Active Substance: CARVEDILOL
     Indication: Product used for unknown indication
     Dosage: 50 MILLIGRAM, ONCE A DAY
     Route: 065
  18. DIGOXIN [Concomitant]
     Active Substance: DIGOXIN
     Indication: Product used for unknown indication
     Route: 065
  19. FUROSEMIDE [Concomitant]
     Active Substance: FUROSEMIDE
     Indication: Product used for unknown indication
     Dosage: 40 MILLIGRAM, ONCE A DAY
     Route: 065
  20. LEVOTHYROXINE [Concomitant]
     Active Substance: LEVOTHYROXINE
     Indication: Primary hypothyroidism
     Route: 065
  21. LOSARTAN [Concomitant]
     Active Substance: LOSARTAN
     Indication: Product used for unknown indication
     Dosage: 25 MILLIGRAM, ONCE A DAY
     Route: 065
  22. OMEPRAZOLE [Concomitant]
     Active Substance: OMEPRAZOLE
     Indication: Product used for unknown indication
     Dosage: 20 MILLIGRAM, ONCE A DAY
     Route: 065
  23. ACETAMINOPHEN [Concomitant]
     Active Substance: ACETAMINOPHEN
     Indication: Product used for unknown indication
     Dosage: 1950 MILLIGRAM, ONCE A DAY
     Route: 065
  24. SPIRONOLACTONE [Concomitant]
     Active Substance: SPIRONOLACTONE
     Indication: Product used for unknown indication
     Dosage: 25 MILLIGRAM, ONCE A DAY
     Route: 065

REACTIONS (40)
  - Dermatitis bullous [Unknown]
  - Oesophageal candidiasis [Unknown]
  - Lymphadenopathy [Unknown]
  - Neutropenia [Unknown]
  - Dysphagia [Unknown]
  - Pain [Unknown]
  - Oral candidiasis [Unknown]
  - Temperature regulation disorder [Unknown]
  - Pancytopenia [Unknown]
  - Prerenal failure [Recovering/Resolving]
  - Blood lactate dehydrogenase increased [Unknown]
  - Skin haemorrhage [Unknown]
  - Stevens-Johnson syndrome [Recovering/Resolving]
  - Toxic epidermal necrolysis [Recovering/Resolving]
  - Lymphopenia [Unknown]
  - Leukopenia [Unknown]
  - Electrocardiogram abnormal [Unknown]
  - Vulvovaginal candidiasis [Unknown]
  - Back pain [Not Recovered/Not Resolved]
  - Superinfection [Unknown]
  - Rash [Recovering/Resolving]
  - Anaemia [Recovering/Resolving]
  - Erythema multiforme [Unknown]
  - Hypokalaemia [Unknown]
  - Staphylococcal bacteraemia [Unknown]
  - Hypertension [Unknown]
  - Osteoarthritis [Unknown]
  - Oedema [Unknown]
  - Hypoalbuminaemia [Unknown]
  - Primary hypothyroidism [Unknown]
  - Malnutrition [Unknown]
  - Psychomotor disadaptation syndrome [Unknown]
  - Spondylolisthesis [Unknown]
  - Hypervolaemia [Unknown]
  - Vitamin D deficiency [Unknown]
  - Drug interaction [Unknown]
  - Prothrombin time prolonged [Unknown]
  - Pyrexia [Recovered/Resolved]
  - Scar [Unknown]
  - Product use in unapproved indication [Unknown]

NARRATIVE: CASE EVENT DATE: 20190208
